FAERS Safety Report 25593295 (Version 1)
Quarter: 2025Q3

REPORT INFORMATION
  Report Type: Spontaneous
  Country: US (occurrence: US)
  Receive Date: 20250722
  Receipt Date: 20250722
  Transmission Date: 20251020
  Serious: No
  Sender: GALDERMA
  Company Number: US-GALDERMA-US2025010768

PATIENT

DRUGS (1)
  1. NEMLUVIO [Suspect]
     Active Substance: NEMOLIZUMAB-ILTO
     Indication: Dermatitis atopic
     Route: 058

REACTIONS (6)
  - Headache [Recovering/Resolving]
  - Nausea [Recovering/Resolving]
  - Paranasal sinus discomfort [Recovering/Resolving]
  - Ocular discomfort [Recovering/Resolving]
  - Head discomfort [Recovering/Resolving]
  - Pruritus [Recovering/Resolving]
